FAERS Safety Report 19449149 (Version 1)
Quarter: 2021Q2

REPORT INFORMATION
  Report Type: Spontaneous
  Country: US (occurrence: US)
  Receive Date: 20210622
  Receipt Date: 20210622
  Transmission Date: 20210717
  Serious: No
  Sender: FDA-Public Use
  Company Number: US-TEVA-2021-US-1924188

PATIENT
  Sex: Female

DRUGS (1)
  1. COPAXONE [Suspect]
     Active Substance: GLATIRAMER ACETATE
     Indication: MULTIPLE SCLEROSIS
     Route: 065

REACTIONS (9)
  - Injection site erythema [Unknown]
  - Hypersensitivity [Unknown]
  - Muscular weakness [Unknown]
  - Injection site inflammation [Unknown]
  - Therapeutic product effect incomplete [Unknown]
  - Magnetic resonance imaging abnormal [Unknown]
  - Diplopia [Unknown]
  - Balance disorder [Unknown]
  - Motor dysfunction [Unknown]
